FAERS Safety Report 13264595 (Version 1)
Quarter: 2017Q1

REPORT INFORMATION
  Report Type: Spontaneous
  Country: US (occurrence: US)
  Receive Date: 20170223
  Receipt Date: 20170223
  Transmission Date: 20170428
  Serious: Yes (Death, Other)
  Sender: FDA-Public Use
  Company Number: US-PFIZER INC-2017080706

PATIENT
  Sex: Male

DRUGS (3)
  1. CIALIS [Suspect]
     Active Substance: TADALAFIL
     Indication: ERECTILE DYSFUNCTION
     Dosage: UNK
     Route: 048
     Dates: start: 201301, end: 201304
  2. VIAGRA [Suspect]
     Active Substance: SILDENAFIL CITRATE
     Indication: ERECTILE DYSFUNCTION
     Dosage: UNK
     Route: 048
     Dates: start: 201306, end: 201308
  3. CIALIS [Suspect]
     Active Substance: TADALAFIL
     Dosage: UNK, REGULARLY
     Route: 048
     Dates: start: 201309, end: 201409

REACTIONS (3)
  - Malignant melanoma [Unknown]
  - Death [Fatal]
  - Neuroendocrine carcinoma of the skin [Unknown]

NARRATIVE: CASE EVENT DATE: 20130911
